FAERS Safety Report 12013974 (Version 1)
Quarter: 2016Q1

REPORT INFORMATION
  Report Type: Spontaneous
  Country: FR (occurrence: FR)
  Receive Date: 20160205
  Receipt Date: 20160205
  Transmission Date: 20160526
  Serious: Yes (Hospitalization)
  Sender: FDA-Public Use
  Company Number: PHHY2016FR015621

PATIENT
  Age: 74 Year
  Sex: Male

DRUGS (3)
  1. RITUXIMAB [Suspect]
     Active Substance: RITUXIMAB
     Indication: NEUTROPENIA
     Dosage: UNK
     Route: 065
     Dates: start: 201504, end: 20151224
  2. BENDAMUSTINE HYDROCHLORIDE [Suspect]
     Active Substance: BENDAMUSTINE HYDROCHLORIDE
     Indication: NEUTROPENIA
     Dosage: UNK
     Route: 065
     Dates: start: 201504, end: 20151224
  3. ACLASTA [Suspect]
     Active Substance: ZOLEDRONIC ACID
     Indication: OSTEOPOROSIS
     Dosage: 5 MG,
     Route: 065
     Dates: end: 201512

REACTIONS (2)
  - Atrioventricular block [Recovered/Resolved]
  - Syncope [Recovered/Resolved]

NARRATIVE: CASE EVENT DATE: 201504
